FAERS Safety Report 7122772-8 (Version None)
Quarter: 2010Q4

REPORT INFORMATION
  Report Type: 
  Country: None (occurrence: None)
  Receive Date: 20101124
  Receipt Date: 20101118
  Transmission Date: 20110411
  Serious: Yes (Other)
  Sender: FDA-Public Use
  Company Number: US-B.I. PHARMACEUTICALS,INC./RIDGEFIELD-2010-BP-13161PF

PATIENT
  Sex: Female

DRUGS (5)
  1. SPIRIVA [Suspect]
  2. TRAMADOL HCL [Suspect]
  3. VITAMINS [Suspect]
  4. TYLENOL W/ CODEINE NO. 3 [Suspect]
  5. ACETYLSALICYLIC ACID [Suspect]

REACTIONS (8)
  - ANXIETY [None]
  - CHOLELITHIASIS [None]
  - CONSTIPATION [None]
  - DEPRESSION [None]
  - DRY MOUTH [None]
  - INSOMNIA [None]
  - THROMBOSIS [None]
  - UNEVALUABLE EVENT [None]
